FAERS Safety Report 23707494 (Version 1)
Quarter: 2024Q2

REPORT INFORMATION
  Report Type: Spontaneous
  Country: US (occurrence: US)
  Receive Date: 20240404
  Receipt Date: 20240404
  Transmission Date: 20240716
  Serious: No
  Sender: FDA-Public Use
  Company Number: US-ABBVIE-5699593

PATIENT
  Age: 65 Year
  Sex: Female
  Weight: 74.842 kg

DRUGS (9)
  1. HUMIRA [Suspect]
     Active Substance: ADALIMUMAB
     Indication: Synovitis
     Dosage: FORM STRENGTH: 40 MILLIGRAM
     Route: 058
     Dates: start: 20240312
  2. HUMIRA [Suspect]
     Active Substance: ADALIMUMAB
     Indication: Acne
  3. HUMIRA [Suspect]
     Active Substance: ADALIMUMAB
     Indication: Rash pustular
  4. HUMIRA [Suspect]
     Active Substance: ADALIMUMAB
     Indication: Bone hypertrophy
  5. HUMIRA [Suspect]
     Active Substance: ADALIMUMAB
     Indication: Osteitis
  6. TYLENOL [Concomitant]
     Active Substance: ACETAMINOPHEN
     Indication: Pain
  7. METHOTREXATE [Concomitant]
     Active Substance: METHOTREXATE
     Indication: Inflammation
  8. VITAMIN D [Concomitant]
     Active Substance: VITAMIN D NOS
     Indication: Vitamin supplementation
  9. FOLIC ACID [Concomitant]
     Active Substance: FOLIC ACID
     Indication: Vitamin supplementation

REACTIONS (2)
  - Off label use [Not Recovered/Not Resolved]
  - Device issue [Not Recovered/Not Resolved]

NARRATIVE: CASE EVENT DATE: 20240301
